FAERS Safety Report 14386636 (Version 2)
Quarter: 2019Q2

REPORT INFORMATION
  Report Type: Spontaneous
  Country: US (occurrence: US)
  Receive Date: 20180115
  Receipt Date: 20190509
  Transmission Date: 20190711
  Serious: Yes (Other)
  Sender: FDA-Public Use
  Company Number: US-SA-2017SA096457

PATIENT
  Age: 58 Year
  Sex: Female
  Weight: 58.97 kg

DRUGS (7)
  1. TAXOTERE [Suspect]
     Active Substance: DOCETAXEL
     Indication: BREAST CANCER FEMALE
     Dosage: 20 MG,Q3W
     Route: 042
     Dates: start: 20070101, end: 20070101
  2. AROMASIN [Concomitant]
     Active Substance: EXEMESTANE
  3. DICLOFENAC [Concomitant]
     Active Substance: DICLOFENAC
     Dosage: UNK UNK,UNK
     Route: 065
     Dates: start: 19950106
  4. NEOSAR [Concomitant]
     Active Substance: CYCLOPHOSPHAMIDE
  5. AROMASIN [Concomitant]
     Active Substance: EXEMESTANE
     Dosage: UNK UNK,UNK
     Route: 065
     Dates: start: 20061106
  6. TAXOTERE [Suspect]
     Active Substance: DOCETAXEL
     Dosage: 20 MG,Q3W
     Route: 042
     Dates: start: 20070412, end: 20070412
  7. ELLENCE [Concomitant]
     Active Substance: EPIRUBICIN HYDROCHLORIDE

REACTIONS (2)
  - Psychological trauma [Unknown]
  - Alopecia [Not Recovered/Not Resolved]

NARRATIVE: CASE EVENT DATE: 20070505
